FAERS Safety Report 8450801-8 (Version None)
Quarter: 2012Q2

REPORT INFORMATION
  Report Type: 
  Country: None (occurrence: None)
  Receive Date: 20120620
  Receipt Date: 20120611
  Transmission Date: 20120825
  Serious: Yes (Hospitalization)
  Sender: FDA-Public Use
  Company Number: DE-JNJFOC-20120605843

PATIENT
  Sex: Female

DRUGS (4)
  1. LISINOPRIL [Concomitant]
  2. HEPARIN [Concomitant]
     Indication: PULMONARY EMBOLISM
  3. PANTOPRAZOLE [Concomitant]
  4. XARELTO [Suspect]
     Indication: PULMONARY EMBOLISM
     Route: 048

REACTIONS (2)
  - BLOOD PRESSURE DECREASED [None]
  - TACHYCARDIA [None]
